FAERS Safety Report 12605103 (Version 4)
Quarter: 2016Q3

REPORT INFORMATION
  Report Type: Spontaneous
  Country: US (occurrence: US)
  Receive Date: 20160728
  Receipt Date: 20160913
  Transmission Date: 20161109
  Serious: Yes (Hospitalization, Other)
  Sender: FDA-Public Use
  Company Number: US-TAKEDA-2016MPI006563

PATIENT
  Age: 69 Year
  Sex: Female
  Weight: 61.59 kg

DRUGS (4)
  1. REVLIMID [Suspect]
     Active Substance: LENALIDOMIDE
     Indication: PLASMA CELL MYELOMA
     Dosage: UNK
     Route: 065
  2. NINLARO [Suspect]
     Active Substance: IXAZOMIB
     Dosage: 2.3 MG, UNK
     Route: 048
     Dates: start: 20160530
  3. DEXAMETHASONE. [Suspect]
     Active Substance: DEXAMETHASONE
     Indication: PLASMA CELL MYELOMA
     Dosage: UNK
     Route: 065
  4. NINLARO [Suspect]
     Active Substance: IXAZOMIB
     Indication: PLASMA CELL MYELOMA
     Dosage: 3 MG, UNK
     Route: 048
     Dates: start: 20160530

REACTIONS (14)
  - Disturbance in attention [Unknown]
  - Rash erythematous [Recovering/Resolving]
  - Feeling abnormal [Unknown]
  - Hyperhidrosis [Unknown]
  - Dyspepsia [Unknown]
  - Pneumonia [Unknown]
  - Blood potassium decreased [Unknown]
  - Decreased appetite [Unknown]
  - Hypokinesia [Unknown]
  - Hypertension [Unknown]
  - Fatigue [Unknown]
  - Asthenia [Unknown]
  - Nausea [Unknown]
  - Rash erythematous [Unknown]

NARRATIVE: CASE EVENT DATE: 20160801
